FAERS Safety Report 13806604 (Version 1)
Quarter: 2017Q3

REPORT INFORMATION
  Report Type: Spontaneous
  Country: JP (occurrence: JP)
  Receive Date: 20170728
  Receipt Date: 20170728
  Transmission Date: 20171127
  Serious: Yes (Other)
  Sender: FDA-Public Use
  Company Number: JP-GLAXOSMITHKLINE-JP2017JPN114583

PATIENT
  Age: 81 Year
  Sex: Female

DRUGS (1)
  1. VALTREX [Suspect]
     Active Substance: VALACYCLOVIR HYDROCHLORIDE
     Indication: HERPES ZOSTER
     Dosage: UNK
     Route: 048

REACTIONS (8)
  - Altered state of consciousness [Recovered/Resolved]
  - Anterior chamber inflammation [Unknown]
  - Intraocular pressure increased [Unknown]
  - Varicella virus test positive [Unknown]
  - Toxic encephalopathy [Recovered/Resolved]
  - Retinal disorder [Unknown]
  - Visual impairment [Unknown]
  - Vitreous opacities [Unknown]

NARRATIVE: CASE EVENT DATE: 201604
